FAERS Safety Report 11166788 (Version 1)
Quarter: 2015Q2

REPORT INFORMATION
  Report Type: Spontaneous
  Country: US (occurrence: US)
  Receive Date: 20150605
  Receipt Date: 20150605
  Transmission Date: 20150821
  Serious: Yes (Other)
  Sender: FDA-Public Use
  Company Number: US-JNJFOC-20150514331

PATIENT
  Age: 41 Year
  Sex: Male

DRUGS (5)
  1. NUCYNTA ER [Suspect]
     Active Substance: TAPENTADOL HYDROCHLORIDE
     Indication: CANCER PAIN
     Route: 048
     Dates: end: 20150506
  2. NUCYNTA ER [Suspect]
     Active Substance: TAPENTADOL HYDROCHLORIDE
     Indication: CANCER PAIN
     Route: 048
  3. NUCYNTA ER [Suspect]
     Active Substance: TAPENTADOL HYDROCHLORIDE
     Indication: CANCER PAIN
     Route: 048
     Dates: start: 201210
  4. NUCYNTA ER [Suspect]
     Active Substance: TAPENTADOL HYDROCHLORIDE
     Indication: CANCER PAIN
     Route: 048
  5. NUCYNTA ER [Suspect]
     Active Substance: TAPENTADOL HYDROCHLORIDE
     Indication: BREAKTHROUGH PAIN
     Route: 048

REACTIONS (2)
  - Fibromyalgia [Not Recovered/Not Resolved]
  - Drug effect incomplete [Recovered/Resolved]

NARRATIVE: CASE EVENT DATE: 201210
